FAERS Safety Report 4474460-4 (Version None)
Quarter: 2004Q4

REPORT INFORMATION
  Report Type: 
  Country: None (occurrence: None)
  Receive Date: 20041014
  Receipt Date: 20031028
  Transmission Date: 20050328
  Serious: Yes (Death, Hospitalization)
  Sender: FDA-Public Use
  Company Number: US-GLAXOSMITHKLINE-A0432322A

PATIENT
  Sex: Female
  Weight: 157.3 kg

DRUGS (6)
  1. AVANDIA [Suspect]
     Indication: DIABETES MELLITUS
     Dosage: 8MG PER DAY
     Route: 048
     Dates: start: 19991115, end: 20020527
  2. HYDROCHLOROTHIAZIDE [Concomitant]
     Dates: end: 20000101
  3. ZESTRIL [Concomitant]
     Dosage: 20MG THREE TIMES PER DAY
     Route: 048
  4. CELEBREX [Concomitant]
     Dosage: 100MG THREE TIMES PER DAY
     Route: 048
  5. FLEXERIL [Concomitant]
     Dosage: 10MG THREE TIMES PER DAY
     Route: 048
  6. INSULIN [Concomitant]
     Indication: DIABETES MELLITUS
     Route: 058
     Dates: start: 19840221

REACTIONS (15)
  - CARDIAC FAILURE CONGESTIVE [None]
  - DIZZINESS [None]
  - DYSPNOEA [None]
  - ELECTROCARDIOGRAM ABNORMAL [None]
  - FALL [None]
  - FLUID RETENTION [None]
  - LEG AMPUTATION [None]
  - LOWER LIMB FRACTURE [None]
  - OEDEMA PERIPHERAL [None]
  - OSTEOMYELITIS [None]
  - POSTOPERATIVE INFECTION [None]
  - RENAL FAILURE [None]
  - SHOCK [None]
  - URINARY TRACT INFECTION [None]
  - WEIGHT INCREASED [None]
